FAERS Safety Report 16264624 (Version 2)
Quarter: 2019Q3

REPORT INFORMATION
  Report Type: Spontaneous
  Country: US (occurrence: US)
  Receive Date: 20190502
  Receipt Date: 20190718
  Transmission Date: 20191004
  Serious: Yes (Other)
  Sender: FDA-Public Use
  Company Number: US-PFIZER INC-2019054315

PATIENT
  Age: 60 Year
  Sex: Female
  Weight: 60.78 kg

DRUGS (5)
  1. CORTISONE [Concomitant]
     Active Substance: CORTISONE
     Dosage: UNK (TWO INJECTIONS, ONE ON EACH SIDE OF HER HIP ABOVE HER SPINE)
     Dates: start: 20190625
  2. LYRICA [Suspect]
     Active Substance: PREGABALIN
     Dosage: 50 MG, 3X/DAY
     Route: 048
  3. CORTISONE [Concomitant]
     Active Substance: CORTISONE
     Indication: STEROID ACTIVITY
     Dosage: UNK
     Dates: start: 20190609
  4. LYRICA [Suspect]
     Active Substance: PREGABALIN
     Indication: LUMBAR RADICULOPATHY
     Dosage: 50 MG, DAILY
     Route: 048
  5. LYRICA [Suspect]
     Active Substance: PREGABALIN
     Indication: PARAESTHESIA
     Dosage: 50 MG, 2X/DAY (1 CAPSULE TWICE A DAY 30 DAYS)(TWO A DAY AFTER THAT)
     Route: 048
     Dates: start: 201902

REACTIONS (5)
  - Neuropathy peripheral [Unknown]
  - Pain [Unknown]
  - Musculoskeletal disorder [Unknown]
  - Malaise [Unknown]
  - Therapeutic product effect delayed [Unknown]
